FAERS Safety Report 20580787 (Version 2)
Quarter: 2022Q1

REPORT INFORMATION
  Report Type: Spontaneous
  Country: US (occurrence: US)
  Receive Date: 20220311
  Receipt Date: 20220314
  Transmission Date: 20220424
  Serious: No
  Sender: FDA-Public Use
  Company Number: US-SUNOVION-2022SUN000650

PATIENT
  Sex: Male

DRUGS (5)
  1. LATUDA [Suspect]
     Active Substance: LURASIDONE HYDROCHLORIDE
     Indication: Bipolar disorder
     Dosage: 20 MG
     Route: 048
     Dates: start: 202202, end: 202202
  2. LATUDA [Suspect]
     Active Substance: LURASIDONE HYDROCHLORIDE
     Dosage: 40 MG
     Route: 048
     Dates: start: 20220218, end: 202202
  3. LATUDA [Suspect]
     Active Substance: LURASIDONE HYDROCHLORIDE
     Dosage: 60 MG
     Route: 048
     Dates: start: 20220226
  4. GABAPENTIN [Concomitant]
     Active Substance: GABAPENTIN
     Indication: Social anxiety disorder
     Dosage: UNK, TID (TAKING 1 TO 2 PILLS OF GABAPENTIN THREE TIMES A DAY)
     Dates: start: 20220227
  5. GABAPENTIN [Concomitant]
     Active Substance: GABAPENTIN
     Indication: Anxiety

REACTIONS (4)
  - Drug effect less than expected [Unknown]
  - Malaise [Unknown]
  - Akathisia [Recovering/Resolving]
  - Restlessness [Unknown]

NARRATIVE: CASE EVENT DATE: 20220228
